FAERS Safety Report 5022395-0 (Version None)
Quarter: 2006Q2

REPORT INFORMATION
  Report Type: 
  Country: None (occurrence: None)
  Receive Date: 20060605
  Receipt Date: 20060522
  Transmission Date: 20061013
  Serious: Yes (Other)
  Sender: FDA-Public Use
  Company Number: 2006-02092

PATIENT
  Sex: Female
  Weight: 52 kg

DRUGS (1)
  1. KENTERA [Suspect]
     Indication: URGE INCONTINENCE
     Dosage: 1 PATCH, TRANSDERMAL
     Route: 062
     Dates: start: 20060509, end: 20060509

REACTIONS (2)
  - INTRAOCULAR PRESSURE INCREASED [None]
  - LIP BLISTER [None]
